FAERS Safety Report 7037329-7 (Version None)
Quarter: 2010Q4

REPORT INFORMATION
  Report Type: 
  Country: None (occurrence: None)
  Receive Date: 20101011
  Receipt Date: 20101006
  Transmission Date: 20110411
  Serious: Yes (Other)
  Sender: FDA-Public Use
  Company Number: NL-ROCHE-731902

PATIENT
  Sex: Male

DRUGS (6)
  1. XELODA [Suspect]
     Indication: GASTRIC CANCER
     Dosage: POSTPONED FOR 6 WEEKS
     Route: 048
     Dates: start: 20100701
  2. XELODA [Suspect]
     Dosage: START DATE: OCT 2010, 3RD COURSE
     Route: 048
  3. EPIRUBICIN [Suspect]
     Indication: GASTRIC CANCER
     Dosage: POSTPONED FOR 6 WEEKS
     Route: 065
     Dates: start: 20100701
  4. EPIRUBICIN [Suspect]
     Dosage: START DATE: OCT 2010, 3RD COURSE
     Route: 065
  5. CISPLATIN [Suspect]
     Indication: GASTRIC CANCER
     Dosage: POSTPONED FOR 6 WEEKS
     Route: 065
     Dates: start: 20100701
  6. CISPLATIN [Suspect]
     Dosage: START DATE: OCT 2010, 3RD COURSE
     Route: 065

REACTIONS (1)
  - MUCOSAL INFLAMMATION [None]
